FAERS Safety Report 7294140-X (Version None)
Quarter: 2011Q1

REPORT INFORMATION
  Report Type: 
  Country: None (occurrence: None)
  Receive Date: 20110204
  Receipt Date: 20110126
  Transmission Date: 20110831
  Serious: Yes (Other)
  Sender: FDA-Public Use
  Company Number: 026344

PATIENT
  Sex: Female

DRUGS (1)
  1. CIMZIA [Suspect]
     Indication: CROHN'S DISEASE
     Dosage: PFS (PRE FILLED SYRINGE) (SUBCUTANEOUS)
     Route: 058
     Dates: start: 20100831

REACTIONS (1)
  - CHOLANGITIS SCLEROSING [None]
